FAERS Safety Report 11501515 (Version 2)
Quarter: 2015Q4

REPORT INFORMATION
  Report Type: Spontaneous
  Country: DE (occurrence: DE)
  Receive Date: 20150914
  Receipt Date: 20151026
  Transmission Date: 20160304
  Serious: Yes (Death, Life-Threatening, Hospitalization, Other)
  Sender: FDA-Public Use
  Company Number: DE-B.I. PHARMACEUTICALS,INC./RIDGEFIELD-2015-BI-49438DE

PATIENT
  Age: 69 Year
  Sex: Female
  Weight: 72 kg

DRUGS (8)
  1. PANTOPRAZOL [Concomitant]
     Active Substance: PANTOPRAZOLE SODIUM
     Indication: PRODUCT USED FOR UNKNOWN INDICATION
     Dosage: 40 MG
     Route: 048
  2. VARGATEF [Suspect]
     Active Substance: NINTEDANIB
     Indication: LUNG ADENOCARCINOMA
     Dosage: 400 MG
     Route: 048
     Dates: start: 20150601, end: 20150702
  3. FOLSAN [Concomitant]
     Active Substance: FOLIC ACID
     Indication: PRODUCT USED FOR UNKNOWN INDICATION
     Dosage: DOSE PER APPLICATION AND DAILY DOSE: 0/4
     Route: 048
  4. DOCETAXEL. [Suspect]
     Active Substance: DOCETAXEL
     Indication: PRODUCT USED FOR UNKNOWN INDICATION
     Route: 065
  5. PAMIDRONIC ACID [Concomitant]
     Active Substance: PAMIDRONIC ACID
     Indication: PRODUCT USED FOR UNKNOWN INDICATION
     Dosage: 90 MG
     Route: 042
  6. VARGATEF [Suspect]
     Active Substance: NINTEDANIB
     Indication: EGFR GENE MUTATION
     Dosage: 400 MG
     Route: 048
     Dates: start: 20150716
  7. VARGATEF [Suspect]
     Active Substance: NINTEDANIB
     Indication: METASTASES TO LYMPH NODES
  8. NOVALGIN [Concomitant]
     Active Substance: METAMIZOLE SODIUM
     Indication: PRODUCT USED FOR UNKNOWN INDICATION
     Route: 048

REACTIONS (11)
  - Embolism [Unknown]
  - Sepsis [Unknown]
  - Hemiplegia [Unknown]
  - Cerebral artery embolism [Unknown]
  - Infection [Unknown]
  - Circulatory collapse [Unknown]
  - Speech disorder [Unknown]
  - Respiratory failure [Fatal]
  - Cerebrovascular accident [Unknown]
  - Subarachnoid haemorrhage [Unknown]
  - General physical health deterioration [Unknown]

NARRATIVE: CASE EVENT DATE: 20150718
